FAERS Safety Report 5797308-4 (Version None)
Quarter: 2008Q3

REPORT INFORMATION
  Report Type: 
  Country: None (occurrence: None)
  Receive Date: 20080701
  Receipt Date: 20080623
  Transmission Date: 20090109
  Serious: Yes (Hospitalization, Other)
  Sender: FDA-Public Use
  Company Number: FR-PFIZER INC-2008052890

PATIENT
  Age: 49 Year
  Sex: Female

DRUGS (4)
  1. LYRICA [Suspect]
     Indication: HERNIA
  2. CHANTIX [Suspect]
     Indication: SMOKING CESSATION THERAPY
     Dosage: DAILY DOSE:1MG-TEXT:EVERY DAY
     Dates: start: 20070401, end: 20080623
  3. PROMEGESTONE [Concomitant]
  4. ESTRADIOL HEMIHYDRATE [Concomitant]

REACTIONS (3)
  - INTESTINAL OBSTRUCTION [None]
  - PAIN [None]
  - SENSORY LOSS [None]
